FAERS Safety Report 8873419 (Version 1)
Quarter: 2012Q4

REPORT INFORMATION
  Report Type: 
  Country: US (occurrence: US)
  Receive Date: 20121030
  Receipt Date: 20121030
  Transmission Date: 20130627
  Serious: Yes (Other)
  Sender: FDA-Public Use
  Company Number: US-ELI_LILLY_AND_COMPANY-US201210006345

PATIENT
  Sex: Male
  Weight: 104.31 kg

DRUGS (16)
  1. EFFIENT [Suspect]
     Indication: STENT PLACEMENT
     Dosage: 10 mg, qd
     Dates: start: 201112
  2. NORVASC [Concomitant]
     Dosage: 10 mg, qd
  3. APIDRA [Concomitant]
     Dosage: 18 u, tid
  4. CRESTOR [Concomitant]
     Dosage: 20 mg, qd
  5. FLOMAX [Concomitant]
     Dosage: 0.4 mg, qd
  6. GABAPENTIN [Concomitant]
     Dosage: 600 mg, bid
  7. LANTUS [Concomitant]
     Dosage: 76 u, qd
  8. LOSARTAN POTASSIUM [Concomitant]
     Dosage: 100 mg, qd
  9. METFORMIN [Concomitant]
     Dosage: 1000 mg, bid
  10. METOPROLOL [Concomitant]
     Dosage: 25 mg, bid
  11. PROTONIX [Concomitant]
     Dosage: 40 mg, qd
  12. REQUIP [Concomitant]
     Dosage: 1 mg, qd
  13. ASPIRIN [Concomitant]
     Dosage: 81 mg, qd
  14. MULTIVITAMIN [Concomitant]
     Dosage: 1 DF, qd
  15. FISH OIL [Concomitant]
     Dosage: 3000 mg, qd
  16. VITAMIN B-12 [Concomitant]
     Dosage: 1000 ug, qd

REACTIONS (1)
  - Chest pain [Unknown]
